FAERS Safety Report 9058550 (Version 1)
Quarter: 2013Q1

REPORT INFORMATION
  Report Type: Spontaneous
  Country: US (occurrence: US)
  Receive Date: 20130211
  Receipt Date: 20130211
  Transmission Date: 20140127
  Serious: No
  Sender: FDA-Public Use
  Company Number: US-JNJFOC-20130116986

PATIENT
  Sex: 0

DRUGS (1)
  1. DURAGESIC [Suspect]
     Indication: PRODUCT USED FOR UNKNOWN INDICATION
     Route: 065

REACTIONS (2)
  - Wrong technique in drug usage process [Unknown]
  - Inappropriate schedule of drug administration [Unknown]
